FAERS Safety Report 8784342 (Version 4)
Quarter: 2013Q1

REPORT INFORMATION
  Report Type: Spontaneous
  Country: JP (occurrence: JP)
  Receive Date: 20120913
  Receipt Date: 20130326
  Transmission Date: 20140127
  Serious: Yes (Other)
  Sender: FDA-Public Use
  Company Number: JP-009507513-1208JPN012526

PATIENT
  Age: 13 Year
  Sex: Female

DRUGS (3)
  1. DECADRON [Suspect]
     Indication: BURKITT^S LYMPHOMA
     Dosage: 0.5 MG, UNK
     Route: 048
  2. VINCRISTINE SULFATE [Suspect]
     Indication: BURKITT^S LYMPHOMA
  3. METHOTREXATE [Suspect]
     Indication: BURKITT^S LYMPHOMA

REACTIONS (1)
  - Posterior reversible encephalopathy syndrome [Unknown]
